FAERS Safety Report 8576838 (Version 2)
Quarter: 2013Q2

REPORT INFORMATION
  Report Type: Spontaneous
  Country: US (occurrence: US)
  Receive Date: 20120524
  Receipt Date: 20130523
  Transmission Date: 20140414
  Serious: Yes (Hospitalization, Other)
  Sender: FDA-Public Use
  Company Number: US-ASTRAZENECA-2012SE30918

PATIENT
  Age: 47 Year
  Sex: Female
  Weight: 72.6 kg

DRUGS (23)
  1. NEXIUM [Suspect]
     Indication: GASTROOESOPHAGEAL REFLUX DISEASE
     Route: 048
     Dates: start: 1998, end: 2011
  2. NEXIUM [Suspect]
     Indication: DYSPEPSIA
     Route: 048
     Dates: start: 1998, end: 2011
  3. NEXIUM [Suspect]
     Indication: GASTROOESOPHAGEAL REFLUX DISEASE
     Route: 048
     Dates: start: 2011, end: 20130513
  4. NEXIUM [Suspect]
     Indication: DYSPEPSIA
     Route: 048
     Dates: start: 2011, end: 20130513
  5. CALCIUM CITRATE [Concomitant]
     Dosage: TWO TIMES A DAY
  6. BENAZEPRAL [Concomitant]
     Indication: HYPERTENSION
  7. PAXIL [Concomitant]
  8. PAXIL [Concomitant]
  9. METHADONE [Concomitant]
     Indication: BACK PAIN
  10. CYMBALTA [Concomitant]
  11. LAMICTAL [Concomitant]
  12. WELLBUTRIN XL [Concomitant]
  13. RIZATRIPTAN [Concomitant]
     Indication: HEADACHE
  14. BACLOPHEN [Concomitant]
     Indication: MUSCLE RELAXANT THERAPY
  15. CLONAZEPAM [Concomitant]
     Indication: RESTLESS LEGS SYNDROME
  16. SUCRALAFATE [Concomitant]
     Indication: HIATUS HERNIA
  17. VIT D [Concomitant]
     Dosage: 50000 UNITS, MONTHLY
  18. CALCITROL [Concomitant]
  19. GABAPENTIN [Concomitant]
  20. NASONEX [Concomitant]
     Dosage: HS
  21. ESTRADIOL [Concomitant]
  22. IBUPROPHEN [Concomitant]
     Indication: PAIN
  23. K PHOS [Concomitant]
     Dates: end: 201201

REACTIONS (13)
  - Nephrolithiasis [Unknown]
  - Ankle fracture [Unknown]
  - Sepsis [Recovered/Resolved]
  - Pneumonia [Recovered/Resolved]
  - Suicidal ideation [Unknown]
  - Back pain [Unknown]
  - Dyspepsia [Unknown]
  - Bone disorder [Unknown]
  - Osteoporosis [Unknown]
  - Osteoarthritis [Unknown]
  - Oesophageal spasm [Unknown]
  - Neuropathy peripheral [Not Recovered/Not Resolved]
  - Off label use [Unknown]
